FAERS Safety Report 23271593 (Version 1)
Quarter: 2023Q4

REPORT INFORMATION
  Report Type: Spontaneous
  Country: US (occurrence: None)
  Receive Date: 20231206
  Receipt Date: 20231206
  Transmission Date: 20240110
  Serious: Yes (Other)
  Sender: FDA-Public Use
  Company Number: None

PATIENT
  Sex: Male

DRUGS (18)
  1. PULMOZYME [Suspect]
     Active Substance: DORNASE ALFA
     Indication: Cystic fibrosis
     Dosage: OTHER QUANTITY : 2.5/2.5 MG/ML;?FREQUENCY : EVERY 12 HOURS;?
     Route: 055
     Dates: start: 20210402
  2. PULMOZYME [Suspect]
     Active Substance: DORNASE ALFA
     Indication: Cystic fibrosis lung
  3. ALBUTEROL AER HFA [Concomitant]
  4. ALBUTEROL NEB 0.083% [Concomitant]
  5. AZITHROMYCIN [Concomitant]
     Active Substance: AZITHROMYCIN
  6. BONZYOL PER LIQ 5% WASH [Concomitant]
  7. BPO 4% [Concomitant]
     Active Substance: BENZOYL PEROXIDE
  8. FLOVENT HFA AER [Concomitant]
  9. FLUTIC/SALME INH [Concomitant]
  10. GNP CLEARLAX POW [Concomitant]
  11. IPRATROPIUM SOL 0.02% INH [Concomitant]
  12. ITRACONAZOLE [Concomitant]
     Active Substance: ITRACONAZOLE
  13. MONTELUKAST [Concomitant]
     Active Substance: MONTELUKAST SODIUM
  14. NEBUSAL NEB 3% [Concomitant]
  15. PREDNISONE [Concomitant]
     Active Substance: PREDNISONE
  16. PREDNISONE [Concomitant]
     Active Substance: PREDNISONE
  17. REZSPIRE PEN [Concomitant]
  18. TRIKAFTA [Concomitant]
     Active Substance: ELEXACAFTOR\IVACAFTOR\TEZACAFTOR

REACTIONS (1)
  - Lip injury [None]
